FAERS Safety Report 18386899 (Version 2)
Quarter: 2021Q1

REPORT INFORMATION
  Report Type: Spontaneous
  Country: US (occurrence: US)
  Receive Date: 20201015
  Receipt Date: 20210121
  Transmission Date: 20210419
  Serious: No
  Sender: FDA-Public Use
  Company Number: US-PFIZER INC-2020398567

PATIENT
  Age: 45 Year
  Sex: Female

DRUGS (8)
  1. ZINC. [Concomitant]
     Active Substance: ZINC
     Dosage: 66 MG
  2. XANAX [Concomitant]
     Active Substance: ALPRAZOLAM
     Dosage: 0.25 MG
  3. XELJANZ XR [Suspect]
     Active Substance: TOFACITINIB CITRATE
     Indication: INFLAMMATION
     Dosage: 11 MG, DAILY
     Route: 048
     Dates: start: 202008
  4. LOESTRIN NOS [Concomitant]
     Active Substance: ETHINYL ESTRADIOL\NORETHINDRONE ACETATE
     Dosage: UNK
  5. CELEBREX [Concomitant]
     Active Substance: CELECOXIB
     Dosage: 100 MG
  6. BIOTIN [Concomitant]
     Active Substance: BIOTIN
     Dosage: 10000 UG
  7. VITAMIN B12 [Concomitant]
     Active Substance: CYANOCOBALAMIN
     Dosage: 2500 UG
  8. MAGNESIUM [Concomitant]
     Active Substance: MAGNESIUM
     Dosage: 100 MG

REACTIONS (1)
  - Pain [Unknown]
